FAERS Safety Report 24764256 (Version 1)
Quarter: 2024Q4

REPORT INFORMATION
  Report Type: Spontaneous
  Country: US (occurrence: US)
  Receive Date: 20241223
  Receipt Date: 20241223
  Transmission Date: 20250115
  Serious: No
  Sender: NOBELPHARMA AMERICA, LLC
  Company Number: US-Nobelpharma America, LLC-NPA-2024-02136

PATIENT
  Age: 24 Year
  Sex: Female

DRUGS (1)
  1. HYFTOR [Suspect]
     Active Substance: SIROLIMUS
     Indication: Tuberous sclerosis complex
     Dosage: ^400MG BID^
     Route: 003
     Dates: start: 20240208

REACTIONS (3)
  - Skin irritation [Not Recovered/Not Resolved]
  - Skin haemorrhage [Not Recovered/Not Resolved]
  - Drug ineffective [None]

NARRATIVE: CASE EVENT DATE: 20240801
